FAERS Safety Report 4588115-9 (Version None)
Quarter: 2005Q1

REPORT INFORMATION
  Report Type: 
  Country: None (occurrence: None)
  Receive Date: 20050216
  Receipt Date: 20050126
  Transmission Date: 20050727
  Serious: Yes (Hospitalization)
  Sender: FDA-Public Use
  Company Number: JP_041205488

PATIENT
  Age: 68 Year
  Sex: Female
  Weight: 43 kg

DRUGS (5)
  1. EVISTA [Suspect]
     Indication: OSTEOPOROSIS
     Dosage: 60 MG/1 DAY
     Route: 048
     Dates: start: 20041127, end: 20041206
  2. SOLETON         (ZALTROPROFEN) [Concomitant]
  3. MUCOSTA  (REBAMIPIDE) [Concomitant]
  4. MOBIC [Concomitant]
  5. NIZATIDINE [Concomitant]

REACTIONS (5)
  - ATELECTASIS [None]
  - FIBRIN DEGRADATION PRODUCTS INCREASED [None]
  - PULMONARY EMBOLISM [None]
  - PYREXIA [None]
  - REFUSAL OF TREATMENT BY PATIENT [None]
